FAERS Safety Report 8721232 (Version 3)
Quarter: 2012Q4

REPORT INFORMATION
  Report Type: 
  Country: JP (occurrence: JP)
  Receive Date: 20120813
  Receipt Date: 20120908
  Transmission Date: 20130627
  Serious: Yes (Death)
  Sender: FDA-Public Use
  Company Number: JP-ABBOTT-12P-087-0966870-00

PATIENT
  Age: 80 Year
  Sex: Male

DRUGS (6)
  1. CLARITHROMYCIN [Suspect]
  2. CLARITHROMYCIN [Suspect]
  3. MINO [Concomitant]
     Indication: MYCOBACTERIAL INFECTION
  4. LVFX [Concomitant]
     Indication: MYCOBACTERIAL INFECTION
  5. LVFX [Concomitant]
  6. FRPM [Concomitant]
     Indication: MYCOBACTERIUM CHELONAE INFECTION

REACTIONS (2)
  - Condition aggravated [Fatal]
  - Hepatic function abnormal [Recovering/Resolving]
